FAERS Safety Report 25158593 (Version 1)
Quarter: 2025Q2

REPORT INFORMATION
  Report Type: Spontaneous
  Country: US (occurrence: US)
  Receive Date: 20250404
  Receipt Date: 20250404
  Transmission Date: 20250717
  Serious: No
  Sender: ROCHE
  Company Number: US-ROCHE-10000242746

PATIENT
  Age: 51 Year
  Sex: Male

DRUGS (11)
  1. ATEZOLIZUMAB [Suspect]
     Active Substance: ATEZOLIZUMAB
     Indication: Hepatocellular carcinoma
     Route: 065
  2. AVASTIN [Suspect]
     Active Substance: BEVACIZUMAB
     Indication: Hepatocellular carcinoma
     Route: 065
  3. YERVOY [Concomitant]
     Active Substance: IPILIMUMAB
     Indication: Hepatocellular carcinoma
  4. OPDIVO [Concomitant]
     Active Substance: NIVOLUMAB
     Indication: Hepatocellular carcinoma
  5. SORAFENIB [Concomitant]
     Active Substance: SORAFENIB
     Indication: Hepatocellular carcinoma
  6. CABOZANTINIB [Concomitant]
     Active Substance: CABOZANTINIB
     Indication: Hepatocellular carcinoma
  7. RAMUCIRUMAB [Concomitant]
     Active Substance: RAMUCIRUMAB
  8. OPDIVO [Concomitant]
     Active Substance: NIVOLUMAB
  9. REGORAFENIB [Concomitant]
     Active Substance: REGORAFENIB
     Indication: Hepatocellular carcinoma
  10. OPDUALAG [Concomitant]
     Active Substance: NIVOLUMAB\RELATLIMAB-RMBW
     Indication: Hepatocellular carcinoma
  11. CEMIPLIMAB [Concomitant]
     Active Substance: CEMIPLIMAB
     Indication: Hepatocellular carcinoma

REACTIONS (2)
  - Ascites [Unknown]
  - Lung neoplasm [Unknown]
